FAERS Safety Report 5529412-X (Version None)
Quarter: 2007Q4

REPORT INFORMATION
  Report Type: 
  Country: None (occurrence: None)
  Receive Date: 20071129
  Receipt Date: 20071119
  Transmission Date: 20080405
  Serious: Yes (Hospitalization)
  Sender: FDA-Public Use
  Company Number: FR-PURDUE-GBR_2007_0003477

PATIENT
  Age: 89 Year
  Sex: Female

DRUGS (2)
  1. OXYNORM CAPSULES 20 MG [Suspect]
     Indication: PAIN
     Dosage: 20 MG, QID
     Route: 048
     Dates: start: 20070911, end: 20070912
  2. DURAGESIC-100 [Suspect]
     Indication: PAIN
     Dosage: 100 MCG, DAILY
     Route: 062
     Dates: start: 20070911, end: 20070912

REACTIONS (2)
  - COMA [None]
  - RESPIRATORY FAILURE [None]
